FAERS Safety Report 6491063-0 (Version None)
Quarter: 2009Q4

REPORT INFORMATION
  Report Type: 
  Country: None (occurrence: None)
  Receive Date: 20091207
  Receipt Date: 20091201
  Transmission Date: 20100525
  Serious: Yes (Death, Hospitalization)
  Sender: FDA-Public Use
  Company Number: 2009SP030443

PATIENT
  Age: 41 Year
  Sex: Male

DRUGS (2)
  1. TEMODAL [Suspect]
     Indication: BRAIN NEOPLASM MALIGNANT
     Dosage: PO
     Route: 048
     Dates: start: 20080603, end: 20090728
  2. TOLEP [Concomitant]

REACTIONS (2)
  - BURKITT'S LYMPHOMA [None]
  - METASTASES TO MENINGES [None]
